FAERS Safety Report 10638191 (Version 1)
Quarter: 2014Q4

REPORT INFORMATION
  Report Type: Spontaneous
  Country: PT (occurrence: PT)
  Receive Date: 20141208
  Receipt Date: 20141208
  Transmission Date: 20150529
  Serious: Yes (Other)
  Sender: FDA-Public Use
  Company Number: PT-ASTRAZENECA-2014SE91627

PATIENT
  Age: 23966 Day
  Sex: Female
  Weight: 83 kg

DRUGS (4)
  1. FENTANILO (B. BRAUN MEDICAL) [Suspect]
     Active Substance: FENTANYL
     Route: 040
     Dates: start: 20141118
  2. ESMERON (MERCK) [Suspect]
     Active Substance: ROCURONIUM BROMIDE
     Route: 040
     Dates: start: 20141118
  3. CEFAZOLINA (HIKMA) [Suspect]
     Active Substance: CEFAZOLIN
     Indication: ANTIBIOTIC PROPHYLAXIS
     Route: 040
     Dates: start: 20141118
  4. DIPRIVAN [Suspect]
     Active Substance: PROPOFOL
     Route: 040
     Dates: start: 20141118

REACTIONS (4)
  - Anaphylactic reaction [Recovered/Resolved]
  - Rash generalised [Recovered/Resolved]
  - Rash erythematous [Recovered/Resolved]
  - Dermatitis allergic [Recovered/Resolved]

NARRATIVE: CASE EVENT DATE: 20141118
